FAERS Safety Report 4885767-0 (Version None)
Quarter: 2006Q1

REPORT INFORMATION
  Report Type: 
  Country: None (occurrence: None)
  Receive Date: 20060120
  Receipt Date: 20060112
  Transmission Date: 20060701
  Serious: Yes (Other)
  Sender: FDA-Public Use
  Company Number: JP-JNJFOC-20050801759

PATIENT
  Sex: Female
  Weight: 42 kg

DRUGS (35)
  1. REMICADE [Suspect]
     Route: 042
  2. REMICADE [Suspect]
     Route: 042
  3. REMICADE [Suspect]
     Route: 042
  4. REMICADE [Suspect]
     Route: 042
  5. REMICADE [Suspect]
     Route: 042
  6. REMICADE [Suspect]
     Route: 042
  7. REMICADE [Suspect]
     Route: 042
  8. REMICADE [Suspect]
     Route: 042
  9. REMICADE [Suspect]
     Route: 042
  10. REMICADE [Suspect]
     Route: 042
  11. REMICADE [Suspect]
     Route: 042
  12. REMICADE [Suspect]
     Route: 042
  13. REMICADE [Suspect]
     Route: 042
  14. REMICADE [Suspect]
     Indication: RHEUMATOID ARTHRITIS
     Route: 042
  15. RHEUMATREX [Suspect]
     Route: 048
  16. RHEUMATREX [Suspect]
     Route: 048
  17. RHEUMATREX [Suspect]
     Route: 048
  18. RHEUMATREX [Suspect]
     Route: 048
  19. RHEUMATREX [Suspect]
     Indication: RHEUMATOID ARTHRITIS
     Route: 048
  20. PREDNISOLONE [Suspect]
     Indication: RHEUMATOID ARTHRITIS
     Route: 048
     Dates: start: 20031203, end: 20040331
  21. HYPEN [Concomitant]
     Indication: RHEUMATOID ARTHRITIS
     Route: 048
     Dates: start: 20031203, end: 20050212
  22. ISCOTIN [Concomitant]
     Route: 048
  23. ISCOTIN [Concomitant]
     Route: 048
  24. ISCOTIN [Concomitant]
     Indication: CHEST X-RAY ABNORMAL
     Route: 048
  25. ISCOTIN [Concomitant]
     Indication: ANTIBIOTIC PROPHYLAXIS
     Route: 048
  26. COUGH SUPPRESSANT [Concomitant]
  27. COUGH SUPPRESSANT [Concomitant]
  28. COUGH SUPPRESSANT [Concomitant]
  29. COUGH SUPPRESSANT [Concomitant]
  30. COTRIM [Concomitant]
     Route: 048
  31. COTRIM [Concomitant]
     Indication: PROPHYLAXIS
     Route: 048
  32. NORVASC [Concomitant]
     Indication: HYPERTENSION
     Route: 048
  33. FOLIAMIN [Concomitant]
     Indication: PROPHYLAXIS
     Route: 048
  34. EVISTA [Concomitant]
     Indication: OSTEOPOROSIS
     Route: 048
  35. ANTITUSSIVE [Concomitant]

REACTIONS (5)
  - CHEST X-RAY ABNORMAL [None]
  - COMPRESSION FRACTURE [None]
  - CRYPTOCOCCOSIS [None]
  - PNEUMONIA FUNGAL [None]
  - TUBERCULIN TEST POSITIVE [None]
